FAERS Safety Report 16088986 (Version 1)
Quarter: 2019Q1

REPORT INFORMATION
  Report Type: Spontaneous
  Country: US (occurrence: US)
  Receive Date: 20190319
  Receipt Date: 20190319
  Transmission Date: 20190418
  Serious: Yes (Life-Threatening)
  Sender: FDA-Public Use
  Company Number: US-ACS-001335

PATIENT
  Age: 51 Year
  Sex: Female

DRUGS (13)
  1. METFORMIN 500MG [Concomitant]
     Active Substance: METFORMIN HYDROCHLORIDE
     Route: 048
  2. CYMBALTA [Concomitant]
     Active Substance: DULOXETINE HYDROCHLORIDE
     Route: 048
  3. VITAMIN D 50,000 UNITS [Concomitant]
     Route: 065
  4. ASPIRIN 81MG [Concomitant]
     Active Substance: ASPIRIN
     Route: 048
  5. FLONASE [Concomitant]
     Active Substance: FLUTICASONE PROPIONATE
     Dosage: IN EACH NOSTRIL BID
     Route: 045
  6. LAMICTAL [Concomitant]
     Active Substance: LAMOTRIGINE
     Route: 065
  7. PRISTIQ EXTENDED-RELEASE [Concomitant]
     Active Substance: DESVENLAFAXINE SUCCINATE
     Route: 048
  8. TRAZODONE 150MG [Concomitant]
     Route: 065
  9. POTASSIUM 99MG [Concomitant]
     Route: 048
  10. REQUIP 1MG [Concomitant]
     Route: 065
  11. CEFTRIAXONE FOR INJECTION 1G [Suspect]
     Active Substance: CEFTRIAXONE
     Route: 042
  12. CYCLOBENZAPRINE 10MG [Concomitant]
     Active Substance: CYCLOBENZAPRINE
     Dosage: 3 DF DAILY AS NEEDED
     Route: 065
  13. LIPITOR [Concomitant]
     Active Substance: ATORVASTATIN CALCIUM
     Route: 065

REACTIONS (1)
  - Hypersensitivity [Recovering/Resolving]
